FAERS Safety Report 24275165 (Version 1)
Quarter: 2024Q3

REPORT INFORMATION
  Report Type: Spontaneous
  Country: ES (occurrence: ES)
  Receive Date: 20240902
  Receipt Date: 20240902
  Transmission Date: 20241016
  Serious: Yes (Other)
  Sender: ARGENX BVBA
  Company Number: ES-ARGENX-2024-ARGX-ES007172

PATIENT

DRUGS (1)
  1. VYVGART [Suspect]
     Active Substance: EFGARTIGIMOD ALFA-FCAB
     Indication: Muscular weakness
     Dosage: UNK
     Route: 042

REACTIONS (1)
  - Hypertensive crisis [Unknown]
